FAERS Safety Report 10084080 (Version 1)
Quarter: 2014Q2

REPORT INFORMATION
  Report Type: Spontaneous
  Country: FR (occurrence: FR)
  Receive Date: 20140417
  Receipt Date: 20140417
  Transmission Date: 20141212
  Serious: Yes (Other)
  Sender: FDA-Public Use
  Company Number: FR-SA-2014SA042638

PATIENT
  Age: 74 Year
  Sex: Male

DRUGS (1)
  1. KETEK [Suspect]
     Indication: PRODUCT USED FOR UNKNOWN INDICATION
     Dosage: DOSE: 1 DF IN THE EVENING 1 DF IN THE MORNING
     Route: 048
     Dates: start: 20140124, end: 20140125

REACTIONS (1)
  - Paresis [Unknown]
